FAERS Safety Report 5205478-1 (Version None)
Quarter: 2006Q4

REPORT INFORMATION
  Report Type: 
  Country: None (occurrence: None)
  Receive Date: 20061027
  Receipt Date: 20051201
  Transmission Date: 20070319
  Serious: Yes (Other)
  Sender: FDA-Public Use
  Company Number: HQWYE897007DEC05

PATIENT
  Age: 47 Year
  Sex: Female
  Weight: 59.02 kg

DRUGS (2)
  1. PREMARIN [Suspect]
     Indication: NIGHT SWEATS
     Dosage: 0.625 MG DAILY AND THEN WAS INCREASED TO  0.9 MG DAILY, ORAL
     Route: 048
     Dates: start: 20051001, end: 20051101
  2. XANAX [Concomitant]

REACTIONS (6)
  - ARTHRALGIA [None]
  - BREAST PAIN [None]
  - CHILLS [None]
  - DRUG INEFFECTIVE [None]
  - EUPHORIC MOOD [None]
  - POOR QUALITY SLEEP [None]
